FAERS Safety Report 16364736 (Version 1)
Quarter: 2019Q2

REPORT INFORMATION
  Report Type: Spontaneous
  Country: CZ (occurrence: CZ)
  Receive Date: 20190529
  Receipt Date: 20190529
  Transmission Date: 20190711
  Serious: Yes (Life-Threatening, Hospitalization, Other)
  Sender: FDA-Public Use
  Company Number: CZ-BRISTOL-MYERS SQUIBB COMPANY-BMS-2019-050702

PATIENT
  Age: 67 Year
  Sex: Male

DRUGS (3)
  1. BISPHOSPHONATES [Suspect]
     Active Substance: UNSPECIFIED INGREDIENT
     Indication: PRODUCT USED FOR UNKNOWN INDICATION
     Route: 065
  2. NIVOLUMAB [Suspect]
     Active Substance: NIVOLUMAB
     Indication: CLEAR CELL RENAL CELL CARCINOMA
     Dosage: 3 MILLIGRAM/KILOGRAM, Q2WK
     Route: 065
     Dates: start: 201801, end: 2018
  3. NIVOLUMAB [Suspect]
     Active Substance: NIVOLUMAB
     Indication: PRODUCT USED FOR UNKNOWN INDICATION
     Dosage: 480 MILLIGRAM, Q4WK
     Route: 065

REACTIONS (6)
  - Hypotension [Unknown]
  - Osteonecrosis of jaw [Recovered/Resolved]
  - Liver function test increased [Unknown]
  - Renal tubular acidosis [Unknown]
  - Malignant neoplasm progression [Unknown]
  - Skin toxicity [Unknown]

NARRATIVE: CASE EVENT DATE: 2018
